FAERS Safety Report 9723097 (Version 1)
Quarter: 2013Q4

REPORT INFORMATION
  Report Type: Spontaneous
  Country: US (occurrence: None)
  Receive Date: 20131126
  Receipt Date: 20131126
  Transmission Date: 20140711
  Serious: Yes (Other)
  Sender: FDA-Public Use
  Company Number: 2013P1021404

PATIENT
  Age: 44 Year
  Sex: Female
  Weight: 72 kg

DRUGS (9)
  1. DURAMORPH [Suspect]
     Dosage: 4 MG; X1; ED
     Route: 008
     Dates: start: 20131118, end: 20131118
  2. IV FLUID [Concomitant]
  3. DEMEROL [Concomitant]
  4. PHENERGAN [Concomitant]
  5. PENICILLIN [Concomitant]
  6. CERVIDIL [Concomitant]
  7. PITOCIN [Concomitant]
  8. BICITRA [Concomitant]
  9. NUBAIN [Concomitant]

REACTIONS (3)
  - Drug ineffective [None]
  - Pain [None]
  - Anaesthetic complication [None]
